FAERS Safety Report 5920116-8 (Version None)
Quarter: 2008Q4

REPORT INFORMATION
  Report Type: 
  Country: None (occurrence: None)
  Receive Date: 20081015
  Receipt Date: 20081015
  Transmission Date: 20090506
  Serious: No
  Sender: FDA-Public Use
  Company Number: None

PATIENT
  Age: 43 Year
  Sex: Male
  Weight: 69.4003 kg

DRUGS (1)
  1. OXYCODONE AND ACETAMINOPHEN [Suspect]
     Indication: NEUROPATHY PERIPHERAL
     Dosage: 5/325MG 1PO QID ORAL
     Route: 048
     Dates: start: 20080102

REACTIONS (1)
  - RASH [None]
